FAERS Safety Report 9541782 (Version 3)
Quarter: 2013Q4

REPORT INFORMATION
  Report Type: Spontaneous
  Country: US (occurrence: US)
  Receive Date: 20130923
  Receipt Date: 20131022
  Transmission Date: 20140711
  Serious: No
  Sender: FDA-Public Use
  Company Number: US-009507513-1309USA007034

PATIENT
  Age: 66 Year
  Sex: Male
  Weight: 64 kg

DRUGS (9)
  1. VICTRELIS [Suspect]
     Indication: HEPATITIS C
     Dosage: 4 CAPSULES (800MG) BY MOUTH, Q8H
     Route: 048
     Dates: start: 20130816
  2. NORVASC [Concomitant]
  3. LABETALOL HYDROCHLORIDE [Concomitant]
  4. LEVOTHYROXINE SODIUM [Concomitant]
  5. SODIUM BICARBONATE [Concomitant]
  6. FLAXSEED [Concomitant]
  7. PROCRIT [Concomitant]
     Dosage: STRENGTH: 40000/ML
  8. RENVELA [Concomitant]
  9. IMODIUM A-D [Concomitant]

REACTIONS (11)
  - Rash pruritic [Not Recovered/Not Resolved]
  - Feeling cold [Not Recovered/Not Resolved]
  - Haemorrhoids [Recovered/Resolved]
  - Diarrhoea [Unknown]
  - Insomnia [Unknown]
  - Frequent bowel movements [Unknown]
  - Diarrhoea [Not Recovered/Not Resolved]
  - Irritability [Not Recovered/Not Resolved]
  - Asthenia [Unknown]
  - Diarrhoea [Unknown]
  - Insomnia [Not Recovered/Not Resolved]
